FAERS Safety Report 4349791-9 (Version None)
Quarter: 2004Q2

REPORT INFORMATION
  Report Type: 
  Country: None (occurrence: None)
  Receive Date: 20040426
  Receipt Date: 20040415
  Transmission Date: 20050107
  Serious: Yes (Hospitalization, Other)
  Sender: FDA-Public Use
  Company Number: USA-2004-0014503

PATIENT
  Age: 40 Year
  Sex: Male

DRUGS (1)
  1. OXYCONTIN [Suspect]
     Dosage: INTRAVENOUS
     Route: 042

REACTIONS (4)
  - DRUG ABUSER [None]
  - DRUG EFFECT DECREASED [None]
  - INTENTIONAL MISUSE [None]
  - SEPSIS [None]
